FAERS Safety Report 8885981 (Version 1)
Quarter: 2012Q4

REPORT INFORMATION
  Report Type: 
  Country: US (occurrence: US)
  Receive Date: 20121105
  Receipt Date: 20121105
  Transmission Date: 20130627
  Serious: No
  Sender: FDA-Public Use
  Company Number: US-PFIZER INC-2012142785

PATIENT
  Age: 44 Year
  Sex: Female
  Weight: 81.63 kg

DRUGS (1)
  1. PRISTIQ [Suspect]
     Indication: DEPRESSION
     Dosage: 50 mg, daily
     Dates: start: 2012, end: 20121025

REACTIONS (5)
  - Mood altered [Not Recovered/Not Resolved]
  - Irritability [Not Recovered/Not Resolved]
  - Hostility [Not Recovered/Not Resolved]
  - Anger [Not Recovered/Not Resolved]
  - Dizziness [Not Recovered/Not Resolved]
